FAERS Safety Report 6733534-5 (Version None)
Quarter: 2010Q2

REPORT INFORMATION
  Report Type: 
  Country: None (occurrence: None)
  Receive Date: 20100520
  Receipt Date: 20100520
  Transmission Date: 20101027
  Serious: Yes (Hospitalization)
  Sender: FDA-Public Use
  Company Number: None

PATIENT
  Age: 4 Year
  Sex: Female
  Weight: 13.6079 kg

DRUGS (2)
  1. CHILDRENS TYLENOL [Suspect]
     Indication: PYREXIA
     Dosage: 1 TSP.
     Dates: start: 20100401, end: 20100409
  2. CHILDREN'S MOTRIN [Suspect]
     Dates: start: 20100401, end: 20100409

REACTIONS (1)
  - HYPERSENSITIVITY [None]
